FAERS Safety Report 6151089-3 (Version None)
Quarter: 2009Q2

REPORT INFORMATION
  Report Type: 
  Country: None (occurrence: None)
  Receive Date: 20090410
  Receipt Date: 20090409
  Transmission Date: 20091009
  Serious: Yes (Other)
  Sender: FDA-Public Use
  Company Number: US-PFIZER INC-2004003252

PATIENT

DRUGS (2)
  1. VFEND [Suspect]
     Route: 065
  2. ANTHRACYCLINES [Suspect]
     Indication: ILL-DEFINED DISORDER
     Route: 065

REACTIONS (1)
  - CARDIAC FAILURE [None]
